FAERS Safety Report 26157778 (Version 1)
Quarter: 2025Q4

REPORT INFORMATION
  Report Type: Spontaneous
  Country: US (occurrence: None)
  Receive Date: 20251212
  Receipt Date: 20251212
  Transmission Date: 20260117
  Serious: Yes (Disabling)
  Sender: FDA-CTU
  Company Number: None

PATIENT
  Age: 68 Year
  Sex: Female
  Weight: 66.6 kg

DRUGS (3)
  1. COSMETICS [Suspect]
     Active Substance: COSMETICS
     Indication: Growth of eyelashes
     Dosage: OTHER FREQUENCY : SEVERAL TIMES/WEEK?OTHER ROUTE : NEAR THE EYES, ON EYELASHES
     Route: 050
  2. ESTRADIOL [Concomitant]
     Active Substance: ESTRADIOL
  3. telemisartan [Concomitant]

REACTIONS (1)
  - Retinal vein occlusion [None]

NARRATIVE: CASE EVENT DATE: 20181112
